APPROVED DRUG PRODUCT: QUIXIN
Active Ingredient: LEVOFLOXACIN
Strength: 0.5% **Federal Register determination that product was not discontinued or withdrawn for safety or effectiveness reasons**
Dosage Form/Route: SOLUTION/DROPS;OPHTHALMIC
Application: N021199 | Product #001
Applicant: SANTEN INC
Approved: Aug 18, 2000 | RLD: Yes | RS: No | Type: DISCN